FAERS Safety Report 21370538 (Version 1)
Quarter: 2022Q3

REPORT INFORMATION
  Report Type: Report from Study
  Country: US (occurrence: US)
  Receive Date: 20220923
  Receipt Date: 20220923
  Transmission Date: 20221027
  Serious: Yes (Hospitalization)
  Sender: FDA-Public Use
  Company Number: US-SHR-US-SHR-04-021315

PATIENT
  Age: 47 Year
  Sex: Female
  Weight: 85 kg

DRUGS (9)
  1. BETASERON [Suspect]
     Active Substance: INTERFERON BETA-1B
     Indication: Multiple sclerosis
     Dosage: 8 MIU, EVERY 2D
     Route: 058
     Dates: start: 1986
  2. BETASERON [Suspect]
     Active Substance: INTERFERON BETA-1B
     Indication: Multiple sclerosis
     Dosage: UNK
     Dates: start: 20220617
  3. AMANTADINE [Concomitant]
     Active Substance: AMANTADINE
     Indication: Fatigue
     Dosage: 100 MG, UNK
     Route: 048
     Dates: start: 198702
  4. PRILOSEC [Concomitant]
     Active Substance: OMEPRAZOLE MAGNESIUM
     Indication: Ulcer
     Dosage: 20 MG, UNK
     Route: 048
     Dates: start: 199402
  5. NEURONTIN [Concomitant]
     Active Substance: GABAPENTIN
     Indication: Pain in extremity
     Dosage: 400 MG, UNK
     Route: 048
     Dates: start: 199912
  6. BACLOFEN [Concomitant]
     Active Substance: BACLOFEN
     Indication: Muscle spasms
     Dosage: 20 MG, UNK
     Route: 048
     Dates: start: 199212
  7. AMITRIPTYLINE [Concomitant]
     Active Substance: AMITRIPTYLINE
     Indication: Sleep disorder
     Dosage: 25 MG, UNK
     Route: 048
     Dates: start: 1987
  8. TIZANIDINE [Concomitant]
     Active Substance: TIZANIDINE
     Indication: Sleep disorder
     Dosage: 4 MG, UNK
     Route: 048
     Dates: start: 2001
  9. PSEUDOEPHEDRINE HYDROCHLORIDE [Concomitant]
     Active Substance: PSEUDOEPHEDRINE HYDROCHLORIDE
     Indication: Sinus headache
     Dosage: UNK, UNK
     Route: 048

REACTIONS (3)
  - Osteoarthritis [Recovering/Resolving]
  - Spinal osteoarthritis [None]
  - Product dose omission issue [None]

NARRATIVE: CASE EVENT DATE: 19940101
